FAERS Safety Report 9518716 (Version 2)
Quarter: 2013Q3

REPORT INFORMATION
  Report Type: Report from Study
  Country: US (occurrence: US)
  Receive Date: 20130912
  Receipt Date: 20130912
  Transmission Date: 20140515
  Serious: Yes (Other)
  Sender: FDA-Public Use
  Company Number: US-JNJFOC-20130501392

PATIENT
  Age: 65 Year
  Sex: Female
  Weight: 95.26 kg

DRUGS (24)
  1. REMICADE [Suspect]
     Indication: CROHN^S DISEASE
     Route: 042
     Dates: start: 20110707
  2. REMICADE [Suspect]
     Indication: CROHN^S DISEASE
     Route: 042
     Dates: start: 20111215
  3. REMICADE [Suspect]
     Indication: CROHN^S DISEASE
     Route: 042
     Dates: start: 20111013
  4. REMICADE [Suspect]
     Indication: CROHN^S DISEASE
     Route: 042
     Dates: start: 20110818
  5. REMICADE [Suspect]
     Indication: CROHN^S DISEASE
     Route: 042
     Dates: start: 20120216
  6. REMICADE [Suspect]
     Indication: CROHN^S DISEASE
     Dosage: ALSO REPORTED AS 100 MG ONCE EVERY 6 WEEKS
     Route: 042
     Dates: start: 20110623
  7. REMICADE [Suspect]
     Indication: CROHN^S DISEASE
     Dosage: ALSO REPORTED AS 500 MG
     Route: 042
     Dates: start: 20120418
  8. REMICADE [Suspect]
     Indication: CROHN^S DISEASE
     Route: 042
     Dates: start: 20120613
  9. REMICADE [Suspect]
     Indication: CROHN^S DISEASE
     Route: 042
     Dates: start: 20120813
  10. ASACOL [Concomitant]
     Indication: CROHN^S DISEASE
     Route: 048
  11. AZATHIOPRINE [Concomitant]
     Indication: CROHN^S DISEASE
     Route: 048
  12. LANTUS [Concomitant]
     Indication: DIABETES MELLITUS
     Dosage: 40 UNITS
     Route: 058
     Dates: start: 20130430
  13. LISINOPRIL [Concomitant]
     Indication: BLOOD PRESSURE
     Dosage: 20/12.5
     Route: 048
  14. LIPITOR [Concomitant]
     Indication: BLOOD CHOLESTEROL
     Route: 048
  15. NEXIUM [Concomitant]
     Indication: CROHN^S DISEASE
     Route: 048
     Dates: start: 2012
  16. NEXIUM [Concomitant]
     Indication: CROHN^S DISEASE
     Route: 048
     Dates: end: 2012
  17. NEXIUM [Concomitant]
     Indication: GASTROOESOPHAGEAL REFLUX DISEASE
     Route: 048
     Dates: start: 2012
  18. NEXIUM [Concomitant]
     Indication: GASTROOESOPHAGEAL REFLUX DISEASE
     Route: 048
     Dates: end: 2012
  19. METOPROLOL [Concomitant]
     Indication: HYPERTENSION
     Route: 065
  20. VITAMINE E [Concomitant]
     Indication: ANAEMIA
     Route: 065
  21. PROCRIT [Concomitant]
     Route: 065
  22. BIOTIN [Concomitant]
     Route: 065
  23. FISH OIL [Concomitant]
     Route: 065
  24. VITAMIN C [Concomitant]
     Route: 065

REACTIONS (1)
  - Pulmonary tuberculosis [Recovered/Resolved]
